FAERS Safety Report 13090940 (Version 1)
Quarter: 2017Q1

REPORT INFORMATION
  Report Type: Spontaneous
  Country: US (occurrence: US)
  Receive Date: 20170106
  Receipt Date: 20170106
  Transmission Date: 20170428
  Serious: Yes (Other)
  Sender: FDA-Public Use
  Company Number: US-AMGEN-USASP2017000341

PATIENT
  Age: 85 Year
  Sex: Female

DRUGS (7)
  1. PROLIA [Suspect]
     Active Substance: DENOSUMAB
     Indication: OSTEOPOROSIS
     Dosage: UNK
     Route: 065
     Dates: start: 20161130
  2. WARFARIN [Concomitant]
     Active Substance: WARFARIN
  3. VITAMIN D [Concomitant]
     Active Substance: CHOLECALCIFEROL
     Dosage: 6000 UNIT, UNK
  4. POTASSIUM [Concomitant]
     Active Substance: POTASSIUM
  5. CARTIA XT [Concomitant]
     Active Substance: DILTIAZEM HYDROCHLORIDE
  6. LOSARTAN. [Concomitant]
     Active Substance: LOSARTAN
  7. VICODIN [Concomitant]
     Active Substance: ACETAMINOPHEN\HYDROCODONE BITARTRATE
     Indication: ARTHRITIS

REACTIONS (13)
  - Osteoporosis [Unknown]
  - Hypoacusis [Unknown]
  - Pyuria [Unknown]
  - Peripheral swelling [Unknown]
  - Injection site discomfort [Unknown]
  - Feeling abnormal [Unknown]
  - Chills [Unknown]
  - Thrombosis [Unknown]
  - Infection [Unknown]
  - Gastrointestinal infection [Unknown]
  - Pulmonary embolism [Unknown]
  - Pyrexia [Recovered/Resolved]
  - Adverse reaction [Unknown]

NARRATIVE: CASE EVENT DATE: 201612
